FAERS Safety Report 18721988 (Version 1)
Quarter: 2021Q1

REPORT INFORMATION
  Report Type: Spontaneous
  Country: US (occurrence: US)
  Receive Date: 20210111
  Receipt Date: 20210111
  Transmission Date: 20210419
  Serious: Yes (Life-Threatening, Hospitalization, Other)
  Sender: FDA-Public Use
  Company Number: US-AUROBINDO-AUR-APL-2021-000385

PATIENT
  Age: 35 Year
  Sex: Female
  Weight: 73 kg

DRUGS (17)
  1. EPINEPHRINE. [Concomitant]
     Active Substance: EPINEPHRINE
     Dosage: 0.06 MICROGRAM/KILOGRAM (1 MINUTE)
     Route: 065
  2. VASOPRESSIN. [Concomitant]
     Active Substance: VASOPRESSIN
     Indication: PRODUCT USED FOR UNKNOWN INDICATION
     Dosage: 0.03 INTERNATIONAL UNIT (1 MINUTE)
     Route: 065
  3. LIDOCAINE INJECTION [Suspect]
     Active Substance: LIDOCAINE
     Dosage: 78 MILLIGRAM (TOTAL)
     Route: 042
  4. LIDOCAINE INJECTION [Suspect]
     Active Substance: LIDOCAINE
     Dosage: 2 MILLIGRAM (1 MINUTE)
     Route: 042
  5. EPINEPHRINE. [Concomitant]
     Active Substance: EPINEPHRINE
     Indication: PRODUCT USED FOR UNKNOWN INDICATION
     Dosage: 0.04 MICROGRAM/KILOGRAM (1 MINUTE)
     Route: 065
  6. AMIODARONE [Concomitant]
     Active Substance: AMIODARONE
     Dosage: 150 MILLIGRAM (BOLUSES THROUGHOUT POD ONE AND TWO)
  7. LIDOCAINE INJECTION [Suspect]
     Active Substance: LIDOCAINE
     Dosage: 3 MILLIGRAM (1 MINUTE)
     Route: 042
  8. DOBUTAMINE [Concomitant]
     Active Substance: DOBUTAMINE HYDROCHLORIDE
     Dosage: 6 MICROGRAM/KILOGRAM (1 MINUTE)
     Route: 065
  9. AMIODARONE [Concomitant]
     Active Substance: AMIODARONE
     Dosage: 1 MILLIGRAM (1 MINUTE)
  10. DEXMEDETOMIDINE. [Concomitant]
     Active Substance: DEXMEDETOMIDINE
     Indication: PRODUCT USED FOR UNKNOWN INDICATION
     Dosage: 0.7 MICROGRAM/KILOGRAM, EVERY HOUR
     Route: 065
  11. AMIODARONE [Concomitant]
     Active Substance: AMIODARONE
     Indication: VENTRICULAR TACHYCARDIA
     Dosage: 1 MILLIGRAM (1 MINUTE)
  12. DOBUTAMINE [Concomitant]
     Active Substance: DOBUTAMINE HYDROCHLORIDE
     Indication: VENTRICULAR DYSFUNCTION
     Dosage: 7 MICROGRAM/KILOGRAM (1 MINUTE)
     Route: 065
  13. AMIODARONE [Concomitant]
     Active Substance: AMIODARONE
     Dosage: 0.5 MILLIGRAM (1 MINUTE)
  14. LIDOCAINE INJECTION [Suspect]
     Active Substance: LIDOCAINE
     Indication: VENTRICULAR ARRHYTHMIA
     Dosage: 4 MILLIGRAM (1 MINUTE)
     Route: 042
  15. KETAMINE [Concomitant]
     Active Substance: KETAMINE
     Indication: PRODUCT USED FOR UNKNOWN INDICATION
     Dosage: 10 MILLIGRAM, EVERY HOUR
     Route: 065
  16. AMIODARONE [Concomitant]
     Active Substance: AMIODARONE
     Dosage: 150 MILLIGRAM (BOLUS)
  17. EPOPROSTENOL. [Concomitant]
     Active Substance: EPOPROSTENOL
     Indication: PRODUCT USED FOR UNKNOWN INDICATION
     Dosage: 50 NANOGRAM PER KILOGRAM (1 MINUTE)
     Route: 065

REACTIONS (5)
  - Local anaesthetic systemic toxicity [Recovered/Resolved]
  - Generalised tonic-clonic seizure [Recovered/Resolved]
  - Neurotoxicity [Recovered/Resolved]
  - Status epilepticus [Recovered/Resolved]
  - Drug level above therapeutic [Recovered/Resolved]
